FAERS Safety Report 6616799-X (Version None)
Quarter: 2010Q1

REPORT INFORMATION
  Report Type: 
  Country: None (occurrence: None)
  Receive Date: 20100305
  Receipt Date: 20100224
  Transmission Date: 20100710
  Serious: Yes (Other)
  Sender: FDA-Public Use
  Company Number: GB-MERCK-1003GBR00006

PATIENT
  Age: 24 Year
  Sex: Male
  Weight: 79 kg

DRUGS (4)
  1. ISENTRESS [Suspect]
     Route: 048
     Dates: start: 20090902, end: 20090930
  2. ABACAVIR SULFATE AND LAMIVUDINE AND ZIDOVUDINE [Suspect]
     Route: 065
     Dates: start: 20090902, end: 20090930
  3. PHENYTOIN [Suspect]
     Indication: GRAND MAL CONVULSION
     Route: 048
     Dates: start: 20090814, end: 20090930
  4. VALPROIC ACID [Suspect]
     Route: 065

REACTIONS (4)
  - DERMATITIS EXFOLIATIVE [None]
  - FACE OEDEMA [None]
  - SKIN OEDEMA [None]
  - SUBCUTANEOUS ABSCESS [None]
